FAERS Safety Report 21789430 (Version 1)
Quarter: 2022Q4

REPORT INFORMATION
  Report Type: Spontaneous
  Country: US (occurrence: None)
  Receive Date: 20221227
  Receipt Date: 20221227
  Transmission Date: 20230113
  Serious: No
  Sender: FDA-Public Use
  Company Number: None

PATIENT
  Age: 46 Year
  Sex: Male
  Weight: 81 kg

DRUGS (7)
  1. XIFAXAN [Suspect]
     Active Substance: RIFAXIMIN
     Indication: Hepatic failure
     Dosage: FREQUENCY : TWICE A DAY;?
     Route: 048
     Dates: start: 20221112
  2. ALENDRONATE [Concomitant]
     Active Substance: ALENDRONATE SODIUM
     Dates: start: 20221111
  3. AMLODIPINE [Concomitant]
     Active Substance: AMLODIPINE BESYLATE
     Dates: start: 20221109
  4. PANTOPRAZOLE [Concomitant]
     Active Substance: PANTOPRAZOLE
     Dates: start: 20221227
  5. GABAPENTIN [Concomitant]
     Active Substance: GABAPENTIN
     Dates: start: 20221109
  6. PRAVASTATIN [Concomitant]
     Active Substance: PRAVASTATIN
     Dates: start: 20221109
  7. TRAMADOL [Concomitant]
     Active Substance: TRAMADOL
     Dates: start: 20221109

REACTIONS (1)
  - Dysphagia [None]

NARRATIVE: CASE EVENT DATE: 20221227
